FAERS Safety Report 25521532 (Version 2)
Quarter: 2025Q3

REPORT INFORMATION
  Report Type: Spontaneous
  Country: RU (occurrence: RU)
  Receive Date: 20250706
  Receipt Date: 20250723
  Transmission Date: 20251021
  Serious: Yes (Other)
  Sender: ALEXION PHARMACEUTICALS
  Company Number: RU-ASTRAZENECA-202506EAF026405RU

PATIENT
  Sex: Female

DRUGS (4)
  1. FASLODEX [Suspect]
     Active Substance: FULVESTRANT
     Indication: Breast cancer
  2. FASLODEX [Suspect]
     Active Substance: FULVESTRANT
  3. ARIMIDEX [Suspect]
     Active Substance: ANASTROZOLE
     Indication: Breast cancer
  4. GOSERELIN [Suspect]
     Active Substance: GOSERELIN
     Indication: Breast cancer

REACTIONS (3)
  - Metastases to lung [Not Recovered/Not Resolved]
  - Disease progression [Recovered/Resolved]
  - Anaemia [Recovered/Resolved]

NARRATIVE: CASE EVENT DATE: 20211001
